FAERS Safety Report 6872686-3 (Version None)
Quarter: 2010Q3

REPORT INFORMATION
  Report Type: 
  Country: None (occurrence: None)
  Receive Date: 20100723
  Receipt Date: 20081021
  Transmission Date: 20110219
  Serious: No
  Sender: FDA-Public Use
  Company Number: US-PFIZER INC-2008089341

PATIENT
  Sex: Female
  Weight: 49.44 kg

DRUGS (9)
  1. CHANTIX [Suspect]
     Indication: SMOKING CESSATION THERAPY
     Dates: start: 20081006
  2. ACTIQ [Concomitant]
     Indication: PAIN
  3. MORPHINE SULFATE [Concomitant]
  4. DALMANE [Concomitant]
  5. NORCO [Concomitant]
     Indication: PAIN
  6. VALIUM [Concomitant]
  7. XANAX [Concomitant]
     Indication: PANIC ATTACK
  8. DRUG, UNSPECIFIED [Concomitant]
     Route: 055
  9. DRUG, UNSPECIFIED [Concomitant]
     Route: 045

REACTIONS (3)
  - ABDOMINAL DISCOMFORT [None]
  - MALAISE [None]
  - PAROSMIA [None]
